FAERS Safety Report 20905975 (Version 1)
Quarter: 2022Q2

REPORT INFORMATION
  Report Type: Report from Study
  Country: CN (occurrence: CN)
  Receive Date: 20220602
  Receipt Date: 20220602
  Transmission Date: 20220720
  Serious: Yes (Other)
  Sender: FDA-Public Use
  Company Number: CN-TEVA-2022-CN-2041051

PATIENT

DRUGS (6)
  1. CLOPIDOGREL [Suspect]
     Active Substance: CLOPIDOGREL BISULFATE
     Indication: Antiplatelet therapy
     Dosage: LOADING DOSE, 300 MG
     Route: 065
  2. CLOPIDOGREL [Suspect]
     Active Substance: CLOPIDOGREL BISULFATE
     Dosage: 75 MILLIGRAM DAILY; AFTER THE PROCEDURE, PATIENT CONTINUED TO RECEIVE DAPT, CLOPIDOGREL, 75 MG/DAY F
     Route: 065
  3. ASPIRIN [Suspect]
     Active Substance: ASPIRIN
     Indication: Antiplatelet therapy
     Dosage: LOADING DOSE, 300 MG
     Route: 065
  4. ASPIRIN [Suspect]
     Active Substance: ASPIRIN
     Dosage: 100 MILLIGRAM DAILY; AFTER THE PROCEDURE, PATIENT CONTINUED TO RECEIVE DAPT, ASPIRIN, 100 MG/DAY FOR
     Route: 065
  5. HEPARIN [Concomitant]
     Active Substance: HEPARIN SODIUM
     Indication: Coagulation time
     Route: 042
  6. NIMODIPINE [Concomitant]
     Active Substance: NIMODIPINE
     Indication: Prophylaxis
     Route: 041

REACTIONS (2)
  - Ischaemia [Unknown]
  - Infarction [Unknown]
